FAERS Safety Report 18880104 (Version 1)
Quarter: 2021Q1

REPORT INFORMATION
  Report Type: Spontaneous
  Country: US (occurrence: US)
  Receive Date: 20210211
  Receipt Date: 20210211
  Transmission Date: 20210420
  Serious: No
  Sender: FDA-Public Use
  Company Number: US-BAYER-2021-057522

PATIENT
  Age: 49 Year
  Sex: Female

DRUGS (2)
  1. BETASERON [Suspect]
     Active Substance: INTERFERON BETA-1B
     Indication: MULTIPLE SCLEROSIS
     Dosage: 0.25 MG, QOD
     Dates: start: 2007
  2. BETACONNECT [Suspect]
     Active Substance: DEVICE
     Dosage: UNK

REACTIONS (3)
  - Expired device used [None]
  - Drug delivery system malfunction [None]
  - Product dose omission issue [None]

NARRATIVE: CASE EVENT DATE: 20210203
